FAERS Safety Report 7741095-7 (Version None)
Quarter: 2011Q3

REPORT INFORMATION
  Report Type: 
  Country: None (occurrence: None)
  Receive Date: 20110909
  Receipt Date: 20110901
  Transmission Date: 20111222
  Serious: Yes (Hospitalization)
  Sender: FDA-Public Use
  Company Number: IN-ABBOTT-09P-078-0611534-00

PATIENT
  Age: 24 Year
  Sex: Female
  Weight: 55 kg

DRUGS (2)
  1. COMBIVIR [Concomitant]
     Indication: PROPHYLAXIS AGAINST HIV INFECTION
     Dosage: 150MG/300MG
     Route: 048
     Dates: start: 20090814, end: 20091110
  2. LOPINAVIR/RITONAVIR [Suspect]
     Indication: PROPHYLAXIS AGAINST HIV INFECTION
     Dosage: 200/50 MG BID
     Route: 048
     Dates: start: 20090814, end: 20091110

REACTIONS (2)
  - PREMATURE LABOUR [None]
  - GESTATIONAL HYPERTENSION [None]
